FAERS Safety Report 24913893 (Version 1)
Quarter: 2025Q1

REPORT INFORMATION
  Report Type: Spontaneous
  Country: CN (occurrence: CN)
  Receive Date: 20250202
  Receipt Date: 20250202
  Transmission Date: 20250409
  Serious: Yes (Death)
  Sender: MERCK
  Company Number: CN-009507513-2501CHN011535

PATIENT
  Age: 26 Year
  Sex: Male

DRUGS (8)
  1. CASPOFUNGIN ACETATE [Suspect]
     Active Substance: CASPOFUNGIN ACETATE
     Indication: Antibiotic therapy
     Dosage: 50 MILLIGRAM, QD
  2. ALBUTEROL SULFATE [Concomitant]
     Active Substance: ALBUTEROL SULFATE
     Dosage: UNK, PRN (INHALER)
  3. BUDESONIDE\FORMOTEROL [Concomitant]
     Active Substance: BUDESONIDE\FORMOTEROL
     Dosage: UNK, PRN (INHALER)
  4. CEFOPERAZONE\SULBACTAM [Concomitant]
     Active Substance: CEFOPERAZONE\SULBACTAM
     Indication: Antibiotic therapy
     Dosage: 2 GRAM, Q6H
  5. TIGECYCLINE [Concomitant]
     Active Substance: TIGECYCLINE
     Indication: Antibiotic therapy
     Dosage: 100 MILLIGRAM, Q12H
  6. AZITHROMYCIN [Concomitant]
     Active Substance: AZITHROMYCIN
     Indication: Antibiotic therapy
     Dosage: 0.5 GRAM, QD
  7. MEROPENEM [Concomitant]
     Active Substance: MEROPENEM
     Indication: Klebsiella test positive
     Dosage: 1 GRAM, Q6H
  8. LEVOFLOXACIN [Concomitant]
     Active Substance: LEVOFLOXACIN
     Indication: Klebsiella test positive
     Dosage: 0.5 GRAM, QD

REACTIONS (1)
  - Drug ineffective [Fatal]
